FAERS Safety Report 5082518-4 (Version None)
Quarter: 2006Q3

REPORT INFORMATION
  Report Type: 
  Country: None (occurrence: None)
  Receive Date: 20060817
  Receipt Date: 20041122
  Transmission Date: 20061208
  Serious: Yes (Hospitalization)
  Sender: FDA-Public Use
  Company Number: ES-ROCHE-386801

PATIENT
  Age: 51 Year
  Sex: Female
  Weight: 85 kg

DRUGS (12)
  1. PEG-INTERFERON ALFA 2A (RO 25-8310) [Suspect]
     Route: 058
     Dates: start: 20040927
  2. PEG-INTERFERON ALFA 2A (RO 25-8310) [Suspect]
     Route: 058
     Dates: start: 20040706, end: 20040920
  3. RIBAVIRIN [Suspect]
     Route: 048
     Dates: start: 20040706, end: 20041031
  4. RIBAVIRIN [Suspect]
     Route: 048
     Dates: start: 20041101, end: 20041115
  5. RIBAVIRIN [Suspect]
     Route: 048
     Dates: start: 20041116, end: 20041116
  6. RIBAVIRIN [Suspect]
     Route: 048
     Dates: start: 20041117, end: 20050705
  7. TIGAN [Concomitant]
     Dates: start: 20040720
  8. LORAZEPAM [Concomitant]
     Dates: start: 20021214
  9. PAROXETINE HCL [Concomitant]
     Dates: start: 20040115
  10. ESTRADIOL INJ [Concomitant]
     Dates: start: 20020615
  11. LISINOPRIL [Concomitant]
     Dates: start: 20030615
  12. SOMA [Concomitant]
     Dates: start: 19990615

REACTIONS (10)
  - CONFUSIONAL STATE [None]
  - DEHYDRATION [None]
  - DISORIENTATION [None]
  - DIZZINESS [None]
  - DYSARTHRIA [None]
  - FATIGUE [None]
  - INFLUENZA [None]
  - LETHARGY [None]
  - PLATELET COUNT DECREASED [None]
  - WHITE BLOOD CELL COUNT DECREASED [None]
